FAERS Safety Report 16778025 (Version 1)
Quarter: 2019Q3

REPORT INFORMATION
  Report Type: Spontaneous
  Country: FR (occurrence: FR)
  Receive Date: 20190905
  Receipt Date: 20190905
  Transmission Date: 20191005
  Serious: Yes (Hospitalization, Other)
  Sender: FDA-Public Use
  Company Number: FR-AMGEN-FRASP2019140185

PATIENT
  Age: 67 Year
  Sex: Female
  Weight: 53 kg

DRUGS (1)
  1. PROLIA [Suspect]
     Active Substance: DENOSUMAB
     Indication: OSTEOPOROSIS
     Route: 058
     Dates: start: 2014, end: 2017

REACTIONS (1)
  - Multiple fractures [Recovering/Resolving]

NARRATIVE: CASE EVENT DATE: 201811
